FAERS Safety Report 9004634 (Version 1)
Quarter: 2012Q4

REPORT INFORMATION
  Report Type: Spontaneous
  Country: GB (occurrence: None)
  Receive Date: 20121227
  Receipt Date: 20121227
  Transmission Date: 20130627
  Serious: Yes (Other)
  Sender: FDA-Public Use
  Company Number: AUR-APL-2012-05529

PATIENT
  Age: 52 Year
  Sex: Male

DRUGS (5)
  1. RIBAVIRIN (RIBAVIRIN) [Suspect]
     Route: 048
     Dates: start: 20120724
  2. PARACETAMOL (PARACETAMOL) [Suspect]
  3. PEGINTERFERON ALFA-2B (PEGINTERFERON ALFA-2B) [Suspect]
     Route: 058
     Dates: start: 20120724
  4. TELAPREVIR (TELAPREVIR) [Suspect]
     Route: 048
     Dates: start: 20120724
  5. VITAMINS NOS (VITAMINS NOS) [Concomitant]

REACTIONS (6)
  - Iron deficiency anaemia [None]
  - Depression [None]
  - Pruritus [None]
  - Nausea [None]
  - Asthenia [None]
  - Headache [None]
